FAERS Safety Report 7747108-0 (Version None)
Quarter: 2011Q3

REPORT INFORMATION
  Report Type: 
  Country: None (occurrence: None)
  Receive Date: 20110913
  Receipt Date: 20110908
  Transmission Date: 20111222
  Serious: Yes (Hospitalization, Other)
  Sender: FDA-Public Use
  Company Number: AR-PFIZER INC-2011200392

PATIENT
  Age: 45 Year
  Sex: Male
  Weight: 120 kg

DRUGS (6)
  1. METILPRES [Concomitant]
     Dosage: 7.5 MG, 1X/DAY
     Dates: start: 20110720
  2. AZULFIDINE [Suspect]
     Dosage: ONE TABLET AT LUNCH 2 TABLETS AT DINNER
  3. AZULFIDINE [Suspect]
     Dosage: 2 TABLETS AT LUNCH 2 TABLETS AT DINNER
  4. AZULFIDINE [Suspect]
     Indication: PSORIATIC ARTHROPATHY
     Dosage: 500 MG, 2X/DAY
     Route: 048
     Dates: start: 20110601, end: 20110811
  5. AZULFIDINE [Suspect]
     Dosage: ONE TABLET AT LUNCH, ONE AT DINNER
  6. ARCOXIA [Concomitant]
     Dosage: UNK
     Route: 048
     Dates: start: 20110701

REACTIONS (5)
  - PYREXIA [None]
  - DRUG HYPERSENSITIVITY [None]
  - DERMATITIS EXFOLIATIVE [None]
  - TRANSAMINASES INCREASED [None]
  - INJECTION SITE PHLEBITIS [None]
